FAERS Safety Report 8113157-6 (Version None)
Quarter: 2012Q1

REPORT INFORMATION
  Report Type: 
  Country: None (occurrence: None)
  Receive Date: 20120203
  Receipt Date: 20120127
  Transmission Date: 20120608
  Serious: Yes (Other)
  Sender: FDA-Public Use
  Company Number: US-ABBOTT-11P-163-0708133-00

PATIENT
  Sex: Female

DRUGS (10)
  1. HUMIRA [Suspect]
     Indication: PSORIASIS
     Dates: start: 20080101
  2. CYTOMEL [Concomitant]
     Indication: PRODUCT USED FOR UNKNOWN INDICATION
  3. METHOTREXATE [Suspect]
     Indication: PRODUCT USED FOR UNKNOWN INDICATION
     Dates: start: 20100621, end: 20100915
  4. AMLODIPINE [Concomitant]
     Indication: RAYNAUD'S PHENOMENON
  5. UNKNOWN ALLERGY DROP [Concomitant]
     Indication: HYPERSENSITIVITY
  6. SYNTHROID [Concomitant]
     Indication: PRODUCT USED FOR UNKNOWN INDICATION
  7. UNKNOWN BLOOD PRESSURE MEDICATION [Concomitant]
     Indication: HYPERTENSION
  8. VALIUM [Concomitant]
     Indication: PROPHYLAXIS
  9. CORTISONE ACETATE [Concomitant]
     Indication: PRODUCT USED FOR UNKNOWN INDICATION
     Dates: start: 20110101, end: 20110101
  10. WOMAN'S MULTIVITAMIN [Concomitant]
     Indication: PRODUCT USED FOR UNKNOWN INDICATION

REACTIONS (20)
  - ALOPECIA [None]
  - EAR TUBE INSERTION [None]
  - BACK PAIN [None]
  - OVERDOSE [None]
  - VISUAL IMPAIRMENT [None]
  - HYPERKERATOSIS [None]
  - HEPATIC ENZYME INCREASED [None]
  - DIZZINESS [None]
  - RASH ERYTHEMATOUS [None]
  - ERYTHEMA [None]
  - GRIP STRENGTH DECREASED [None]
  - EAR OPERATION [None]
  - MUSCLE SPASMS [None]
  - OROPHARYNGEAL BLISTERING [None]
  - SINUSITIS [None]
  - BLINDNESS [None]
  - TOOTH EXTRACTION [None]
  - GENERALISED OEDEMA [None]
  - EYE SWELLING [None]
  - RASH GENERALISED [None]
